FAERS Safety Report 7256942-5 (Version None)
Quarter: 2011Q1

REPORT INFORMATION
  Report Type: 
  Country: None (occurrence: None)
  Receive Date: 20110129
  Receipt Date: 20100713
  Transmission Date: 20110831
  Serious: No
  Sender: FDA-Public Use
  Company Number: US-ABBOTT-10P-163-0657078-00

PATIENT
  Age: 55 Year
  Sex: Male

DRUGS (3)
  1. EYE CAPS VITAMINS [Concomitant]
     Indication: PRODUCT USED FOR UNKNOWN INDICATION
  2. LUMIGAN [Concomitant]
     Indication: INTRAOCULAR PRESSURE INCREASED
     Dosage: DROPS FOR EYES
  3. HUMIRA [Suspect]
     Indication: PSORIASIS
     Dates: start: 20090901

REACTIONS (1)
  - PSORIASIS [None]
